FAERS Safety Report 24193957 (Version 1)
Quarter: 2024Q3

REPORT INFORMATION
  Report Type: Spontaneous
  Country: US (occurrence: None)
  Receive Date: 20240809
  Receipt Date: 20240809
  Transmission Date: 20241017
  Serious: No
  Sender: Public
  Company Number: None

PATIENT

DRUGS (1)
  1. ANIOSGEL 85 NPC [Suspect]
     Active Substance: ALCOHOL

REACTIONS (2)
  - Peritoneal dialysis [None]
  - Dry skin [None]
